FAERS Safety Report 19658324 (Version 1)
Quarter: 2021Q3

REPORT INFORMATION
  Report Type: Spontaneous
  Country: US (occurrence: US)
  Receive Date: 20210804
  Receipt Date: 20210804
  Transmission Date: 20211014
  Serious: Yes (Hospitalization, Other)
  Sender: FDA-Public Use
  Company Number: US-ANIPHARMA-2021-US-017019

PATIENT
  Age: 42 Year
  Sex: Female
  Weight: 53.07 kg

DRUGS (5)
  1. SILDENAFIL CITRATE. [Concomitant]
     Active Substance: SILDENAFIL CITRATE
     Route: 065
  2. OPSUMIT [Concomitant]
     Active Substance: MACITENTAN
     Route: 065
  3. UPTRAVI [Concomitant]
     Active Substance: SELEXIPAG
     Route: 065
  4. REMODULIN [Suspect]
     Active Substance: TREPROSTINIL
     Dosage: UNKNOWN / 0.0475 ?G/KG, CONTINUING, IV DRIP / UNK, CONTINUING, IV DRIP
     Route: 042
     Dates: start: 20200904
  5. VANCOMYCIN HYDROCHLORIDE (NON?SPECIFIC) [Suspect]
     Active Substance: VANCOMYCIN HYDROCHLORIDE
     Indication: PRODUCT USED FOR UNKNOWN INDICATION

REACTIONS (7)
  - Erythema [Unknown]
  - Skin infection [Unknown]
  - Catheter site erythema [Unknown]
  - Vascular device infection [Unknown]
  - Catheter site vesicles [Unknown]
  - Hypersensitivity [Unknown]
  - Drug hypersensitivity [Unknown]

NARRATIVE: CASE EVENT DATE: 202106
